FAERS Safety Report 7054519-8 (Version None)
Quarter: 2010Q4

REPORT INFORMATION
  Report Type: 
  Country: None (occurrence: None)
  Receive Date: 20101020
  Receipt Date: 20101006
  Transmission Date: 20110411
  Serious: Yes (Other)
  Sender: FDA-Public Use
  Company Number: PHHY2010US61497

PATIENT
  Sex: Female
  Weight: 76 kg

DRUGS (6)
  1. RECLAST [Suspect]
     Indication: OSTEOPOROSIS POSTMENOPAUSAL
     Dosage: 5 MG, YEARLY
     Route: 042
     Dates: start: 20100913, end: 20100913
  2. ZYRTEC [Concomitant]
  3. PROTONIX [Concomitant]
  4. PREVACID [Concomitant]
     Dosage: 30 MG
     Route: 048
  5. FLONASE [Concomitant]
  6. TOPROL-XL [Concomitant]

REACTIONS (4)
  - CHEST PAIN [None]
  - ERYTHEMA [None]
  - FEELING ABNORMAL [None]
  - FLUSHING [None]
